FAERS Safety Report 16790718 (Version 1)
Quarter: 2019Q3

REPORT INFORMATION
  Report Type: Spontaneous
  Country: US (occurrence: US)
  Receive Date: 20190910
  Receipt Date: 20190910
  Transmission Date: 20191005
  Serious: No
  Sender: FDA-Public Use
  Company Number: US-PFIZER INC-2019388265

PATIENT
  Age: 41 Year
  Sex: Male

DRUGS (1)
  1. NEURONTIN [Suspect]
     Active Substance: GABAPENTIN
     Dosage: 300 MG, 2X/DAY

REACTIONS (3)
  - Cough [Unknown]
  - Malaise [Unknown]
  - Blood pressure abnormal [Unknown]
